FAERS Safety Report 8481712-X (Version None)
Quarter: 2012Q3

REPORT INFORMATION
  Report Type: 
  Country: None (occurrence: None)
  Receive Date: 20120702
  Receipt Date: 20120619
  Transmission Date: 20120928
  Serious: Yes (Hospitalization)
  Sender: FDA-Public Use
  Company Number: HK-ROCHE-781088

PATIENT
  Sex: Female
  Weight: 65.6 kg

DRUGS (15)
  1. AVASTIN [Suspect]
     Indication: OVARIAN CANCER
     Dosage: FORM: INFUSION, LAST DATE PRIOR TO SAE:02 AUG 2011.
     Route: 042
     Dates: start: 20110524, end: 20111201
  2. LAMIVUDINE [Concomitant]
  3. CIMETIDINE [Concomitant]
  4. DICLOFENAC SODIUM [Concomitant]
  5. MEFENAMIC ACID [Concomitant]
  6. CHLOORHEXIDINEDIGLUCONAAT [Concomitant]
     Dosage: DOSE: 2 APP
  7. PACLITAXEL [Suspect]
     Indication: OVARIAN CANCER
     Dosage: FORM: INFUSION, LAST DATE PRIOR TO SAE:02 AUG 2011.
     Route: 042
     Dates: start: 20110524, end: 20111201
  8. MAXOLON [Concomitant]
     Dates: start: 20110715, end: 20110715
  9. LEVOFLOXACIN [Concomitant]
     Dates: start: 20110715, end: 20110723
  10. NEUPOGEN [Concomitant]
     Dates: start: 20110527, end: 20110602
  11. GENERIC COMPONENT(S) NOT KNOWN [Concomitant]
  12. CARBOPLATIN [Suspect]
     Indication: OVARIAN CANCER
     Dosage: LAST DATE PRIOR TO SAE:02 AUG 2011, DOSE 6 AUC
     Route: 042
     Dates: start: 20110524, end: 20111201
  13. GASTROCAINE [Concomitant]
  14. FILGRASTIM [Concomitant]
     Dosage: DOSE: 30
     Dates: start: 20110715, end: 20110721
  15. PEPCIDINE [Concomitant]
     Dates: start: 20110715, end: 20110716

REACTIONS (6)
  - PYREXIA [None]
  - SYNCOPE [None]
  - INFECTION [None]
  - PULMONARY TUBERCULOSIS [None]
  - PRESYNCOPE [None]
  - URINARY TRACT INFECTION [None]
